FAERS Safety Report 5803657-3 (Version None)
Quarter: 2008Q3

REPORT INFORMATION
  Report Type: 
  Country: None (occurrence: None)
  Receive Date: 20080708
  Receipt Date: 20070703
  Transmission Date: 20090109
  Serious: No
  Sender: FDA-Public Use
  Company Number: US-AMGEN-KDL225640

PATIENT
  Sex: Female
  Weight: 52.2 kg

DRUGS (3)
  1. KINERET [Suspect]
     Indication: RHEUMATOID ARTHRITIS
     Route: 058
     Dates: start: 20020101
  2. ARAVA [Concomitant]
     Dates: start: 20040101
  3. PREDNISONE TAB [Concomitant]

REACTIONS (6)
  - CELLULITIS STAPHYLOCOCCAL [None]
  - IMPAIRED HEALING [None]
  - INJURY [None]
  - RHEUMATOID ARTHRITIS [None]
  - SKIN LACERATION [None]
  - STAPHYLOCOCCAL INFECTION [None]
